FAERS Safety Report 25910602 (Version 2)
Quarter: 2025Q4

REPORT INFORMATION
  Report Type: Spontaneous
  Country: JP (occurrence: JP)
  Receive Date: 20251013
  Receipt Date: 20251106
  Transmission Date: 20260118
  Serious: Yes (Other)
  Sender: JOHNSON AND JOHNSON
  Company Number: JP-JNJFOC-20251013958

PATIENT
  Age: 7 Decade
  Sex: Male

DRUGS (5)
  1. TREMFYA [Suspect]
     Active Substance: GUSELKUMAB
     Indication: Colitis ulcerative
     Route: 041
     Dates: start: 20250822, end: 20250822
  2. TREMFYA [Suspect]
     Active Substance: GUSELKUMAB
     Route: 041
     Dates: start: 20250919, end: 20250919
  3. TREMFYA [Suspect]
     Active Substance: GUSELKUMAB
  4. MESALAMINE [Suspect]
     Active Substance: MESALAMINE
     Indication: Product used for unknown indication
     Dosage: DOSE UNKNOWN
     Route: 065
  5. IMURAN [Suspect]
     Active Substance: AZATHIOPRINE
     Indication: Product used for unknown indication
     Dosage: DOSE UNKNOWN
     Route: 048

REACTIONS (1)
  - Megacolon [Recovered/Resolved]

NARRATIVE: CASE EVENT DATE: 20250101
